FAERS Safety Report 24157410 (Version 1)
Quarter: 2024Q3

REPORT INFORMATION
  Report Type: Spontaneous
  Country: ES (occurrence: ES)
  Receive Date: 20240731
  Receipt Date: 20240731
  Transmission Date: 20241016
  Serious: Yes (Other)
  Sender: GLAND PHARMA
  Company Number: ES-GLANDPHARMA-ES-2024GLNLIT00570

PATIENT
  Age: 34 Year
  Sex: Male

DRUGS (18)
  1. GEMCITABINE [Suspect]
     Active Substance: GEMCITABINE
     Indication: Desmoplastic small round cell tumour
     Route: 065
     Dates: start: 202107, end: 202112
  2. DOXORUBICIN HYDROCHLORIDE [Suspect]
     Active Substance: DOXORUBICIN HYDROCHLORIDE
     Indication: Desmoplastic small round cell tumour
     Route: 065
     Dates: start: 201808
  3. DOCETAXEL [Suspect]
     Active Substance: DOCETAXEL\DOCETAXEL ANHYDROUS
     Indication: Desmoplastic small round cell tumour
     Route: 065
     Dates: start: 202107, end: 202112
  4. IRINOTECAN HYDROCHLORIDE [Suspect]
     Active Substance: IRINOTECAN HYDROCHLORIDE
     Indication: Desmoplastic small round cell tumour
     Route: 065
     Dates: start: 201904
  5. VINCRISTINE [Suspect]
     Active Substance: VINCRISTINE
     Indication: Desmoplastic small round cell tumour
     Route: 065
     Dates: start: 201808
  6. CYCLOPHOSPHAMIDE [Suspect]
     Active Substance: CYCLOPHOSPHAMIDE
     Indication: Desmoplastic small round cell tumour
     Route: 065
  7. CYCLOPHOSPHAMIDE [Suspect]
     Active Substance: CYCLOPHOSPHAMIDE
     Route: 065
  8. CYCLOPHOSPHAMIDE [Suspect]
     Active Substance: CYCLOPHOSPHAMIDE
     Route: 048
     Dates: start: 20211228, end: 20220313
  9. TEMOZOLOMIDE [Suspect]
     Active Substance: TEMOZOLOMIDE
     Indication: Desmoplastic small round cell tumour
     Route: 065
     Dates: start: 201904
  10. VINORELBINE [Suspect]
     Active Substance: VINORELBINE TARTRATE
     Indication: Desmoplastic small round cell tumour
     Route: 065
     Dates: start: 20211228, end: 20220313
  11. TRABECTEDIN [Concomitant]
     Active Substance: TRABECTEDIN
     Indication: Desmoplastic small round cell tumour
     Route: 065
     Dates: start: 201907
  12. TRABECTEDIN [Concomitant]
     Active Substance: TRABECTEDIN
     Route: 065
  13. FILGRASTIM [Concomitant]
     Active Substance: FILGRASTIM
     Route: 065
     Dates: start: 201907
  14. FILGRASTIM [Concomitant]
     Active Substance: FILGRASTIM
     Route: 065
  15. PAZOPANIB [Concomitant]
     Active Substance: PAZOPANIB
     Indication: Desmoplastic small round cell tumour
     Route: 065
     Dates: start: 202010
  16. TOPOTECAN [Concomitant]
     Active Substance: TOPOTECAN HYDROCHLORIDE
     Indication: Desmoplastic small round cell tumour
     Route: 065
     Dates: start: 202103
  17. IFOSFAMIDE [Concomitant]
     Active Substance: IFOSFAMIDE
     Indication: Desmoplastic small round cell tumour
     Route: 065
     Dates: start: 201902
  18. ETOPOSIDE [Concomitant]
     Active Substance: ETOPOSIDE
     Indication: Desmoplastic small round cell tumour
     Route: 065

REACTIONS (6)
  - Febrile neutropenia [Unknown]
  - Thrombocytopenia [Unknown]
  - Abdominal pain [Unknown]
  - Haematotoxicity [Unknown]
  - Product use in unapproved indication [Unknown]
  - Drug ineffective [Unknown]
